FAERS Safety Report 7978744-4 (Version None)
Quarter: 2011Q4

REPORT INFORMATION
  Report Type: 
  Country: None (occurrence: None)
  Receive Date: 20111214
  Receipt Date: 20111212
  Transmission Date: 20120403
  Serious: Yes (Congenital Anomaly, Other)
  Sender: FDA-Public Use
  Company Number: US-PFIZER INC-2010109649

PATIENT
  Sex: Female
  Weight: 3.2 kg

DRUGS (3)
  1. KEFLEX [Concomitant]
     Dosage: 250 MG, 4X/DAY
     Route: 064
  2. ZOLOFT [Suspect]
     Indication: DEPRESSION
     Dosage: 200 MG, 1X/DAY
     Route: 064
     Dates: start: 20030101
  3. WELLBUTRIN XL [Concomitant]
     Indication: DEPRESSION
     Dosage: 300 MG, 1X/DAY
     Route: 064

REACTIONS (4)
  - RECTAL FISSURE [None]
  - FOETAL EXPOSURE DURING PREGNANCY [None]
  - ATRIAL SEPTAL DEFECT [None]
  - HAEMATOCHEZIA [None]
